FAERS Safety Report 25596747 (Version 1)
Quarter: 2025Q3

REPORT INFORMATION
  Report Type: Spontaneous
  Country: EU (occurrence: EU)
  Receive Date: 20250723
  Receipt Date: 20250723
  Transmission Date: 20251021
  Serious: Yes (Other)
  Sender: ELI LILLY AND COMPANY
  Company Number: None

PATIENT
  Age: 66 Year
  Sex: Female
  Weight: 78 kg

DRUGS (2)
  1. ERBITUX [Suspect]
     Active Substance: CETUXIMAB
     Indication: Product used for unknown indication
     Route: 042
     Dates: start: 20220413
  2. ERBITUX [Suspect]
     Active Substance: CETUXIMAB
     Route: 042
     Dates: start: 20220413

REACTIONS (1)
  - Skin reaction [Not Recovered/Not Resolved]

NARRATIVE: CASE EVENT DATE: 20220427
